FAERS Safety Report 11206105 (Version 1)
Quarter: 2015Q2

REPORT INFORMATION
  Report Type: Report from Study
  Country: FR (occurrence: FR)
  Receive Date: 20150622
  Receipt Date: 20150622
  Transmission Date: 20150821
  Serious: Yes (Other)
  Sender: FDA-Public Use
  Company Number: FR-JNJFOC-20131200974

PATIENT
  Sex: Female

DRUGS (2)
  1. RISPERDAL [Suspect]
     Active Substance: RISPERIDONE
     Indication: PRODUCT USED FOR UNKNOWN INDICATION
     Route: 065
  2. RISPERDAL [Suspect]
     Active Substance: RISPERIDONE
     Indication: PRODUCT USED FOR UNKNOWN INDICATION
     Route: 065

REACTIONS (17)
  - Tooth disorder [Unknown]
  - Musculoskeletal stiffness [Unknown]
  - Adverse event [Unknown]
  - Hyperacusis [Unknown]
  - Neck pain [Unknown]
  - Dental caries [Unknown]
  - Anxiety [Unknown]
  - Amenorrhoea [Unknown]
  - Emotional disorder [Unknown]
  - Withdrawal syndrome [Unknown]
  - Thought blocking [Unknown]
  - Altered state of consciousness [Unknown]
  - Visual acuity reduced [Recovered/Resolved]
  - Eye movement disorder [Unknown]
  - Drug intolerance [Unknown]
  - Aptyalism [Unknown]
  - Fatigue [Unknown]
